FAERS Safety Report 12099561 (Version 1)
Quarter: 2016Q1

REPORT INFORMATION
  Report Type: Spontaneous
  Country: GB (occurrence: GB)
  Receive Date: 20160222
  Receipt Date: 20160222
  Transmission Date: 20160526
  Serious: Yes (Hospitalization)
  Sender: FDA-Public Use
  Company Number: GB-TEVA-634754ACC

PATIENT
  Age: 92 Year
  Sex: Male

DRUGS (8)
  1. BENDROFLUMETHIAZIDE [Concomitant]
     Active Substance: BENDROFLUMETHIAZIDE
  2. GTN [Concomitant]
     Active Substance: NITROGLYCERIN
  3. LOSARTAN POTASSIUM. [Concomitant]
     Active Substance: LOSARTAN POTASSIUM
  4. ASPIRIN. [Concomitant]
     Active Substance: ASPIRIN
  5. ATORVASTATIN CALCIUM. [Concomitant]
     Active Substance: ATORVASTATIN CALCIUM
  6. ATENOLOL. [Suspect]
     Active Substance: ATENOLOL
     Dosage: 25 MILLIGRAM DAILY;
     Route: 048
  7. BETAHISTINE [Concomitant]
     Active Substance: BETAHISTINE
  8. INDORAMIN [Concomitant]
     Active Substance: INDORAMIN

REACTIONS (3)
  - Hemiparesis [Unknown]
  - Fall [Unknown]
  - Sinus bradycardia [Recovered/Resolved]
